FAERS Safety Report 4957313-4 (Version None)
Quarter: 2006Q1

REPORT INFORMATION
  Report Type: 
  Country: None (occurrence: None)
  Receive Date: 20060323
  Receipt Date: 20060313
  Transmission Date: 20060701
  Serious: Yes (Other)
  Sender: FDA-Public Use
  Company Number: GXKR2006US01473

PATIENT
  Age: 22 Year
  Sex: Male

DRUGS (3)
  1. RIFAMPICIN [Suspect]
     Indication: LEPROSY
  2. DAPSONE [Suspect]
     Indication: LEPROSY
  3. CLOFAZIMINE (CLOFAZIMINE) [Suspect]
     Indication: LEPROSY

REACTIONS (10)
  - ARTHRALGIA [None]
  - CHILLS [None]
  - DRUG INTERACTION [None]
  - ERYTHEMA NODOSUM [None]
  - LEPROSY [None]
  - MUSCULOSKELETAL STIFFNESS [None]
  - OEDEMA PERIPHERAL [None]
  - PYREXIA [None]
  - SKIN EXFOLIATION [None]
  - SKIN NODULE [None]
